FAERS Safety Report 18129502 (Version 1)
Quarter: 2020Q3

REPORT INFORMATION
  Report Type: Other
  Country: US (occurrence: US)
  Receive Date: 20200810
  Receipt Date: 20200810
  Transmission Date: 20201103
  Serious: Yes (Hospitalization)
  Sender: FDA-Public Use
  Company Number: US-ROCHE-2649964

PATIENT

DRUGS (4)
  1. METHYLPREDNISOLONE. [Suspect]
     Active Substance: METHYLPREDNISOLONE
     Route: 042
  2. TOCILIZUMAB. [Suspect]
     Active Substance: TOCILIZUMAB
     Indication: COVID-19
     Route: 042
  3. METHYLPREDNISOLONE. [Suspect]
     Active Substance: METHYLPREDNISOLONE
     Indication: COVID-19
     Route: 042
  4. INSULIN [Concomitant]
     Active Substance: INSULIN NOS

REACTIONS (5)
  - Intentional product use issue [Unknown]
  - Haemoptysis [Unknown]
  - Pulmonary cavitation [Unknown]
  - Mycobacterial infection [Not Recovered/Not Resolved]
  - Off label use [Unknown]
